FAERS Safety Report 15004822 (Version 1)
Quarter: 2018Q2

REPORT INFORMATION
  Report Type: Spontaneous
  Country: FR (occurrence: FR)
  Receive Date: 20180613
  Receipt Date: 20180613
  Transmission Date: 20180711
  Serious: Yes (Other)
  Sender: FDA-Public Use
  Company Number: FR-PFIZER INC-2018233024

PATIENT
  Age: 57 Year
  Sex: Male
  Weight: 88 kg

DRUGS (9)
  1. SETOFILM [Suspect]
     Active Substance: ONDANSETRON
     Indication: PROPHYLAXIS OF NAUSEA AND VOMITING
     Dosage: 8 MG, 1X/DAY
     Route: 048
     Dates: start: 20180326, end: 20180419
  2. OFLOXACIN. [Suspect]
     Active Substance: OFLOXACIN
     Indication: BRAIN EMPYEMA
     Dosage: 600 MG, 1X/DAY
     Route: 048
     Dates: start: 20180313, end: 20180419
  3. COLCHICINE. [Concomitant]
     Active Substance: COLCHICINE
     Indication: ARTHRALGIA
     Dosage: UNK
     Route: 048
  4. ALPRAZOLAM. [Concomitant]
     Active Substance: ALPRAZOLAM
     Dosage: 0.25 MG, 1X/DAY
     Route: 048
  5. LEDERFOLINE [Suspect]
     Active Substance: LEUCOVORIN CALCIUM
     Indication: PROPHYLAXIS
     Dosage: 5 MG, 1X/DAY
     Route: 048
     Dates: start: 20180326, end: 20180412
  6. TEMODAL [Suspect]
     Active Substance: TEMOZOLOMIDE
     Indication: GLIOBLASTOMA
     Dosage: 140 MG, 1X/DAY
     Route: 048
     Dates: start: 20180326, end: 20180419
  7. BACTRIM [Suspect]
     Active Substance: SULFAMETHOXAZOLE\TRIMETHOPRIM
     Indication: ANTIFUNGAL PROPHYLAXIS
     Dosage: 1 DF, ALTERNATE DAY/800 MG/160 MG
     Route: 048
     Dates: start: 20180326, end: 20180412
  8. CEFOTAXIME SODIUM [Suspect]
     Active Substance: CEFOTAXIME SODIUM
     Indication: BRAIN EMPYEMA
     Dosage: 12 G, DAILY; 6G/12H
     Route: 042
     Dates: start: 20180208, end: 20180419
  9. DOLIPRANE [Concomitant]
     Active Substance: ACETAMINOPHEN
     Dosage: 3 G, 1X/DAY
     Route: 048

REACTIONS (1)
  - Rash erythematous [Recovered/Resolved]

NARRATIVE: CASE EVENT DATE: 20180410
